FAERS Safety Report 10215438 (Version 2)
Quarter: 2014Q2

REPORT INFORMATION
  Report Type: Spontaneous
  Country: US (occurrence: US)
  Receive Date: 20140604
  Receipt Date: 20140618
  Transmission Date: 20141212
  Serious: Yes (Other)
  Sender: FDA-Public Use
  Company Number: US-BEH-2014042379

PATIENT
  Sex: Female

DRUGS (2)
  1. ZEMAIRA [Suspect]
     Indication: FIBROMYALGIA
     Dosage: ?/-JAN-2014
  2. ZEMAIRA [Suspect]
     Indication: EMPHYSEMA
     Dosage: ?/-JAN-2014

REACTIONS (6)
  - Rheumatoid arthritis [Unknown]
  - Pain in extremity [Recovered/Resolved]
  - Cough [Recovering/Resolving]
  - Fatigue [Unknown]
  - Migraine [Unknown]
  - Fibromyalgia [Unknown]
